FAERS Safety Report 10193741 (Version 1)
Quarter: 2014Q2

REPORT INFORMATION
  Report Type: Spontaneous
  Country: US (occurrence: US)
  Receive Date: 20140524
  Receipt Date: 20140524
  Transmission Date: 20141212
  Serious: No
  Sender: FDA-Public Use
  Company Number: US-SA-2014SA001533

PATIENT
  Age: 61 Year
  Sex: Female
  Weight: 89.36 kg

DRUGS (6)
  1. LANTUS SOLOSTAR [Suspect]
     Indication: TYPE 2 DIABETES MELLITUS
     Dosage: DOSE:50 UNIT(S)
     Route: 051
     Dates: start: 20110509
  2. SOLOSTAR [Concomitant]
     Indication: TYPE 2 DIABETES MELLITUS
  3. METFORMIN [Concomitant]
     Indication: DIABETES MELLITUS
     Dates: start: 2009
  4. BYETTA [Concomitant]
     Indication: DIABETES MELLITUS
     Dates: start: 2009
  5. VICTOZA [Concomitant]
     Indication: DIABETES MELLITUS
     Dates: start: 2010
  6. JANUVIA [Concomitant]
     Indication: DIABETES MELLITUS
     Dates: start: 2010

REACTIONS (2)
  - Skin swelling [Unknown]
  - Injection site haemorrhage [Unknown]
